FAERS Safety Report 7557978-7 (Version None)
Quarter: 2011Q2

REPORT INFORMATION
  Report Type: 
  Country: None (occurrence: None)
  Receive Date: 20110620
  Receipt Date: 20110609
  Transmission Date: 20111010
  Serious: Yes (Other)
  Sender: FDA-Public Use
  Company Number: JP-ASTRAZENECA-2010SE53661

PATIENT
  Age: 61 Year
  Sex: Male
  Weight: 80 kg

DRUGS (4)
  1. CANDESARTAN CILEXETIL [Suspect]
     Indication: HYPERTENSION
     Route: 048
     Dates: start: 20050409, end: 20081129
  2. PLETAL [Suspect]
     Indication: BASAL GANGLIA INFARCTION
     Route: 048
     Dates: start: 20050409, end: 20100930
  3. CANDESARTAN CILEXETIL [Suspect]
     Route: 048
     Dates: start: 20081130, end: 20081220
  4. CANDESARTAN CILEXETIL [Suspect]
     Route: 048
     Dates: start: 20081221, end: 20101001

REACTIONS (1)
  - INTERSTITIAL LUNG DISEASE [None]
